FAERS Safety Report 14707152 (Version 2)
Quarter: 2018Q3

REPORT INFORMATION
  Report Type: Spontaneous
  Country: IN (occurrence: IN)
  Receive Date: 20180403
  Receipt Date: 20180820
  Transmission Date: 20181010
  Serious: Yes (Other)
  Sender: FDA-Public Use
  Company Number: IN-CONCORDIA PHARMACEUTICALS INC.-E2B_00010818

PATIENT
  Age: 49 Year
  Sex: Male

DRUGS (15)
  1. DAPSONE. [Concomitant]
     Active Substance: DAPSONE
     Indication: LEPROSY
  2. CLOFAZIMINE [Concomitant]
     Active Substance: CLOFAZIMINE
     Indication: LEPROSY
  3. CLARITHROMYCIN. [Concomitant]
     Active Substance: CLARITHROMYCIN
     Indication: TYPE 2 LEPRA REACTION
  4. RIFAMPICIN [Concomitant]
     Active Substance: RIFAMPIN
     Indication: LEPROSY
  5. MINOCYCLINE [Concomitant]
     Active Substance: MINOCYCLINE\MINOCYCLINE HYDROCHLORIDE
     Indication: TYPE 2 LEPRA REACTION
  6. AZATHIOPRINE. [Concomitant]
     Active Substance: AZATHIOPRINE
     Indication: TYPE 2 LEPRA REACTION
  7. CLOFAZIMINE [Concomitant]
     Active Substance: CLOFAZIMINE
     Indication: LEPROSY
  8. AZATHIOPRINE. [Concomitant]
     Active Substance: AZATHIOPRINE
  9. PREDNISOLONE. [Suspect]
     Active Substance: PREDNISOLONE
     Indication: TYPE 2 LEPRA REACTION
     Dosage: HIGHER DOSES (40?80 MG DAILY)
  10. OFLOXACIN. [Concomitant]
     Active Substance: OFLOXACIN
     Indication: TYPE 2 LEPRA REACTION
  11. PREDNISOLONE. [Suspect]
     Active Substance: PREDNISOLONE
     Route: 048
  12. PENTOXIFYLLINE. [Concomitant]
     Active Substance: PENTOXIFYLLINE
     Indication: TYPE 2 LEPRA REACTION
  13. NSAIDS [Concomitant]
     Active Substance: UNSPECIFIED INGREDIENT
     Indication: TYPE 2 LEPRA REACTION
  14. CLOFAZIMINE [Concomitant]
     Active Substance: CLOFAZIMINE
  15. MULTIVITAMINS [Concomitant]
     Active Substance: VITAMINS
     Indication: TYPE 2 LEPRA REACTION

REACTIONS (2)
  - Diabetes mellitus inadequate control [Unknown]
  - Hypertriglyceridaemia [Unknown]
